FAERS Safety Report 8348473-6 (Version None)
Quarter: 2012Q2

REPORT INFORMATION
  Report Type: 
  Country: None (occurrence: None)
  Receive Date: 20120509
  Receipt Date: 20120503
  Transmission Date: 20120825
  Serious: Yes (Hospitalization)
  Sender: FDA-Public Use
  Company Number: US-AMGEN-USASP2011031900

PATIENT
  Age: 37 Year
  Sex: Female
  Weight: 61 kg

DRUGS (5)
  1. EPOGEN [Suspect]
     Indication: ANAEMIA
     Dosage: 10000 IU, 3 TIMES/WK
     Route: 042
     Dates: start: 19940708
  2. RAMIPRIL [Concomitant]
     Dosage: UNK
  3. VITAMIN D [Concomitant]
     Dosage: UNK
  4. METOPROLOL TARTRATE [Concomitant]
     Dosage: UNK
  5. PRILOSEC [Concomitant]
     Dosage: UNK

REACTIONS (1)
  - SYSTEMIC LUPUS ERYTHEMATOSUS [None]
